FAERS Safety Report 5284344-X (Version None)
Quarter: 2007Q1

REPORT INFORMATION
  Report Type: 
  Country: None (occurrence: None)
  Receive Date: 20070327
  Receipt Date: 20070321
  Transmission Date: 20070707
  Serious: Yes (Death, Life-Threatening)
  Sender: FDA-Public Use
  Company Number: 238720

PATIENT
  Age: 55 Year
  Sex: Male

DRUGS (1)
  1. ACTILYSE(ALTEPLASE) PWDR + SOLVENT,INFUSION SOLN [Suspect]
     Indication: ISCHAEMIC STROKE
     Dosage: 70 MG, SINGLE, INTRAVENOUS
     Route: 042
     Dates: start: 20070316

REACTIONS (1)
  - COMA [None]
